FAERS Safety Report 7700460-4 (Version None)
Quarter: 2011Q3

REPORT INFORMATION
  Report Type: 
  Country: None (occurrence: None)
  Receive Date: 20110817
  Receipt Date: 20110805
  Transmission Date: 20111222
  Serious: Yes (Hospitalization)
  Sender: FDA-Public Use
  Company Number: TCI2011A04375

PATIENT
  Age: 90 Year
  Sex: Female

DRUGS (3)
  1. CELESTAMINE TAB [Concomitant]
  2. ASPIRIN [Concomitant]
  3. LANSOPRAZOLE [Suspect]
     Indication: PROPHYLAXIS AGAINST GASTROINTESTINAL ULCER
     Dosage: 15 MG (15 MG,1 D)
     Route: 048

REACTIONS (4)
  - DEMENTIA ALZHEIMER'S TYPE [None]
  - MOBILITY DECREASED [None]
  - AKINESIA [None]
  - CONDITION AGGRAVATED [None]
